FAERS Safety Report 9781848 (Version 1)
Quarter: 2013Q4

REPORT INFORMATION
  Report Type: Spontaneous
  Country: US (occurrence: US)
  Receive Date: 20131225
  Receipt Date: 20131225
  Transmission Date: 20140711
  Serious: No
  Sender: FDA-Public Use
  Company Number: US-009507513-1312USA005918

PATIENT
  Age: 40 Year
  Sex: Male

DRUGS (1)
  1. SINGULAIR [Suspect]
     Indication: HYPERSENSITIVITY
     Dosage: 10 MG, ON AND OFF FOR ABOUT A YEAR, OR YEAR AND A HALF YEAR
     Route: 048
     Dates: start: 2011

REACTIONS (2)
  - Imprisonment [Unknown]
  - Aggression [Unknown]
